FAERS Safety Report 22386650 (Version 1)
Quarter: 2023Q2

REPORT INFORMATION
  Report Type: Spontaneous
  Country: NL (occurrence: None)
  Receive Date: 20230531
  Receipt Date: 20230531
  Transmission Date: 20230721
  Serious: Yes (Hospitalization)
  Sender: FDA-Public Use
  Company Number: None

PATIENT
  Sex: Male
  Weight: 105 kg

DRUGS (7)
  1. PIRFENIDONE [Suspect]
     Active Substance: PIRFENIDONE
     Indication: Idiopathic pulmonary fibrosis
     Dosage: 7D 3X2
     Route: 048
     Dates: start: 202304
  2. PIRFENIDONE [Suspect]
     Active Substance: PIRFENIDONE
     Dosage: 3X/DAY 3 TABLETS (AFTER CHARGING SCHEDULE; 7D 3X1; 7D 3X2)
     Route: 048
     Dates: start: 20230403
  3. PIRFENIDONE [Suspect]
     Active Substance: PIRFENIDONE
     Dosage: 3X/DAY 3 TABLETS
     Route: 048
     Dates: start: 202304, end: 20230516
  4. ATORVASTATIN [Suspect]
     Active Substance: ATORVASTATIN
     Indication: Hypercholesterolaemia
     Dosage: 1 X PER DAY 1 PIECE
     Route: 065
     Dates: start: 2017, end: 20230516
  5. ATORVASTATIN [Suspect]
     Active Substance: ATORVASTATIN
     Indication: Coronary artery disease
     Dosage: 1 X PER DAY 1 PIECE
     Route: 065
     Dates: start: 20220112, end: 20230516
  6. PANTOPRAZOLE SODIUM [Concomitant]
     Active Substance: PANTOPRAZOLE SODIUM
     Dosage: MAAGSAPRESISTENTE TABLET, 40 MG (MILLIGRAM)
  7. METOPROLOL [Concomitant]
     Active Substance: METOPROLOL
     Dosage: TABLET MET GEREGULEERDE AFGIFTE, 100 MG (MILLIGRAM)

REACTIONS (1)
  - Hepatic failure [Not Recovered/Not Resolved]
